FAERS Safety Report 12075806 (Version 5)
Quarter: 2016Q3

REPORT INFORMATION
  Report Type: Spontaneous
  Country: US (occurrence: US)
  Receive Date: 20160214
  Receipt Date: 20160928
  Transmission Date: 20161109
  Serious: Yes (Congenital Anomaly, Other)
  Sender: FDA-Public Use
  Company Number: PHEH2016US003258

PATIENT
  Sex: Male

DRUGS (2)
  1. ZOFRAN [Suspect]
     Active Substance: ONDANSETRON HYDROCHLORIDE
     Indication: FOETAL EXPOSURE DURING PREGNANCY
     Dosage: MOTHER DOSE: 8 MG DAILY (QD)
     Route: 064
  2. ONDANSETRON [Suspect]
     Active Substance: ONDANSETRON
     Indication: FOETAL EXPOSURE DURING PREGNANCY
     Dosage: MOTHER^S DOSE: 8 MG, UNK
     Route: 064

REACTIONS (14)
  - Emotional distress [Unknown]
  - Cleft lip and palate [Unknown]
  - Speech disorder developmental [Unknown]
  - Pain [Unknown]
  - Anxiety [Unknown]
  - Hypoacusis [Unknown]
  - Injury [Unknown]
  - Foetal exposure during pregnancy [Unknown]
  - Anhedonia [Unknown]
  - Congenital anomaly [Unknown]
  - Gingival disorder [Unknown]
  - Craniofacial deformity [Unknown]
  - Cystic fibrosis [Unknown]
  - Tooth development disorder [Unknown]
